FAERS Safety Report 17856061 (Version 1)
Quarter: 2020Q2

REPORT INFORMATION
  Report Type: Spontaneous
  Country: US (occurrence: US)
  Receive Date: 20200603
  Receipt Date: 20200603
  Transmission Date: 20200714
  Serious: No
  Sender: FDA-Public Use
  Company Number: None

PATIENT
  Age: 37 Year
  Sex: Female
  Weight: 52.65 kg

DRUGS (13)
  1. VITAMIN D [Concomitant]
     Active Substance: VITAMIN D NOS
  2. MAGNESIUM [Concomitant]
     Active Substance: MAGNESIUM
  3. CACAO [Concomitant]
  4. NUVARING [Concomitant]
     Active Substance: ETHINYL ESTRADIOL\ETONOGESTREL
  5. MELATONIN [Concomitant]
     Active Substance: MELATONIN
  6. WOMEN^S MULTIVITAMIN [Concomitant]
  7. ZINC. [Concomitant]
     Active Substance: ZINC
  8. TROKRNDI [Concomitant]
  9. MIGRALIEF [Concomitant]
  10. HYDROXYZINE [Concomitant]
     Active Substance: HYDROXYZINE HYDROCHLORIDE
  11. TROPIRAMATE [Concomitant]
  12. EMGALITY [Suspect]
     Active Substance: GALCANEZUMAB-GNLM
     Indication: MIGRAINE
  13. MACA [Concomitant]

REACTIONS (17)
  - Muscle twitching [None]
  - Abdominal pain upper [None]
  - Hypoaesthesia [None]
  - Constipation [None]
  - Arthralgia [None]
  - Muscle spasms [None]
  - Gastrointestinal disorder [None]
  - Weight decreased [None]
  - Muscular weakness [None]
  - Paraesthesia [None]
  - Muscle fatigue [None]
  - Fine motor skill dysfunction [None]
  - Pain in extremity [None]
  - Nausea [None]
  - Neuralgia [None]
  - Gait disturbance [None]
  - Fatigue [None]

NARRATIVE: CASE EVENT DATE: 20200515
